FAERS Safety Report 24009977 (Version 4)
Quarter: 2024Q4

REPORT INFORMATION
  Report Type: Spontaneous
  Country: JP (occurrence: JP)
  Receive Date: 20240625
  Receipt Date: 20241119
  Transmission Date: 20250114
  Serious: Yes (Other)
  Sender: AMGEN
  Company Number: JP-AMGEN-JPNSP2024042486

PATIENT
  Age: 64 Year
  Sex: Male
  Weight: 52 kg

DRUGS (7)
  1. LUMAKRAS [Suspect]
     Active Substance: SOTORASIB
     Indication: K-ras gene mutation
     Dosage: 960 MILLIGRAM, QD
     Route: 048
     Dates: start: 20231205, end: 20240119
  2. LUMAKRAS [Suspect]
     Active Substance: SOTORASIB
     Indication: Non-small cell lung cancer
     Dosage: 480 MILLIGRAM, QD, DOSE REDUCED
     Route: 048
     Dates: start: 20240202, end: 20240712
  3. BEVACIZUMAB [Suspect]
     Active Substance: BEVACIZUMAB
     Indication: Product used for unknown indication
     Route: 065
  4. ACETAMINOPHEN [Concomitant]
     Active Substance: ACETAMINOPHEN
     Indication: Cancer pain
     Dosage: 500 MILLIGRAM, QID
     Dates: start: 20231124, end: 20240126
  5. LANSOPRAZOLE [Concomitant]
     Active Substance: LANSOPRAZOLE
     Indication: Gastrooesophageal reflux disease
     Dosage: 15 MILLIGRAM, QD
     Dates: start: 20231124
  6. MIROGABALIN BESYLATE [Concomitant]
     Active Substance: MIROGABALIN BESYLATE
     Indication: Cancer pain
     Dosage: 5 MILLIGRAM, BID
     Dates: start: 20231124
  7. OXYCODONE [Concomitant]
     Active Substance: OXYCODONE
     Indication: Cancer pain
     Dosage: 5 MILLIGRAM, BID

REACTIONS (3)
  - Liver disorder [Recovered/Resolved]
  - Non-small cell lung cancer [Unknown]
  - Drug eruption [Unknown]

NARRATIVE: CASE EVENT DATE: 20240119
